FAERS Safety Report 6538969-1 (Version None)
Quarter: 2010Q1

REPORT INFORMATION
  Report Type: 
  Country: None (occurrence: None)
  Receive Date: 20100114
  Receipt Date: 20100114
  Transmission Date: 20100710
  Serious: Yes (Other)
  Sender: FDA-Public Use
  Company Number: None

PATIENT
  Age: 60 Year
  Sex: Male
  Weight: 70.3075 kg

DRUGS (1)
  1. ZICAM COLD RELIEF NASAL SWABS MATRIXX INITIATIVES [Suspect]

REACTIONS (1)
  - NASAL DISCOMFORT [None]
